FAERS Safety Report 9370060 (Version 1)
Quarter: 2013Q2

REPORT INFORMATION
  Report Type: Spontaneous
  Country: AT (occurrence: AT)
  Receive Date: 20130626
  Receipt Date: 20130626
  Transmission Date: 20140414
  Serious: Yes (Hospitalization)
  Sender: FDA-Public Use
  Company Number: AT-ELI_LILLY_AND_COMPANY-AT201306006500

PATIENT
  Age: 38 Year
  Sex: Female

DRUGS (9)
  1. FLUCTINE [Suspect]
     Indication: DEPRESSION
     Dosage: 20 MG, QD
     Route: 048
     Dates: start: 20110302, end: 20110304
  2. MIRTABENE [Suspect]
     Dosage: 30 MG, QD
     Route: 048
     Dates: start: 20110304, end: 20110305
  3. MIRTABENE [Suspect]
     Dosage: 45 MG, QD
     Route: 048
     Dates: start: 20110306
  4. SEROQUEL XR [Suspect]
     Dosage: 50 MG, QD
     Route: 048
     Dates: start: 20110304
  5. TEMESTA [Concomitant]
     Dosage: 2 MG, QD
     Route: 048
     Dates: start: 20110302, end: 20110305
  6. TEMESTA [Concomitant]
     Dosage: 1 MG, QD
     Route: 048
     Dates: start: 20110306
  7. PANTOLOC                           /01263204/ [Concomitant]
     Dosage: 40 MG, QD
     Route: 048
     Dates: start: 2010
  8. PASPERTIN [Concomitant]
     Dosage: 30 MG, QD
     Route: 048
     Dates: start: 2010
  9. EBEFEN [Concomitant]
     Dosage: 20 MG, QD
     Route: 048
     Dates: start: 2010

REACTIONS (1)
  - Restless legs syndrome [Recovered/Resolved]
